FAERS Safety Report 24550216 (Version 7)
Quarter: 2025Q1

REPORT INFORMATION
  Report Type: Spontaneous
  Country: IE (occurrence: IE)
  Receive Date: 20241025
  Receipt Date: 20250103
  Transmission Date: 20250409
  Serious: Yes (Other)
  Sender: FERRING
  Company Number: IE-FERRINGPH-2024FE06002

PATIENT

DRUGS (1)
  1. DINOPROSTONE [Suspect]
     Active Substance: DINOPROSTONE
     Indication: Labour induction
     Dosage: 10 MG, ONCE/SINGLE
     Route: 067
     Dates: start: 20241016, end: 20241016

REACTIONS (5)
  - Intrapartum haemorrhage [Recovered/Resolved]
  - Premature separation of placenta [Recovered/Resolved]
  - Uterine hyperstimulation [Recovered/Resolved]
  - Product storage error [Recovered/Resolved]
  - Product communication issue [Recovered/Resolved]

NARRATIVE: CASE EVENT DATE: 20241016
